FAERS Safety Report 7382920-1 (Version None)
Quarter: 2011Q1

REPORT INFORMATION
  Report Type: 
  Country: None (occurrence: None)
  Receive Date: 20110330
  Receipt Date: 20101018
  Transmission Date: 20110831
  Serious: Yes (Hospitalization, Other)
  Sender: FDA-Public Use
  Company Number: US-BAYER-201018393NA

PATIENT
  Sex: Female
  Weight: 61.224 kg

DRUGS (14)
  1. YASMIN [Suspect]
     Indication: PRODUCT USED FOR UNKNOWN INDICATION
     Route: 048
     Dates: start: 20060101, end: 20061101
  2. BACTRIM [Concomitant]
     Indication: URINARY TRACT INFECTION
     Dosage: UNK
     Dates: start: 20070223
  3. RITUXIMAB [Concomitant]
  4. XIFAXAN [Concomitant]
     Dosage: 200 MG, TID
     Route: 048
  5. ZEGERID [Concomitant]
  6. NEXIUM [Concomitant]
  7. YASMIN [Suspect]
     Dosage: UNK
     Dates: start: 20060216
  8. IMITREX [Concomitant]
     Dosage: UNK UNK, PRN
     Dates: start: 20030101, end: 20050101
  9. MOTRIN [Concomitant]
     Indication: CHEST PAIN
  10. PREVACID [Concomitant]
     Dosage: 300 MG, QD
     Route: 048
  11. EFFEXOR [Concomitant]
  12. ZELNORM [Concomitant]
     Indication: ABDOMINAL PAIN
     Dosage: UNK
     Dates: start: 20070213
  13. QUESTRAN [Concomitant]
     Dosage: 4 MG, TID
  14. EXCEDRIN (MIGRAINE) [Concomitant]
     Dosage: UNK
     Dates: start: 19980101

REACTIONS (5)
  - NAUSEA [None]
  - BILIARY DYSKINESIA [None]
  - CHOLELITHIASIS [None]
  - ABDOMINAL PAIN [None]
  - GALLBLADDER DISORDER [None]
